FAERS Safety Report 8505588-7 (Version None)
Quarter: 2012Q3

REPORT INFORMATION
  Report Type: 
  Country: None (occurrence: None)
  Receive Date: 20120703
  Receipt Date: 20120618
  Transmission Date: 20120928
  Serious: No
  Sender: FDA-Public Use
  Company Number: 2012SP034089

PATIENT
  Sex: Male

DRUGS (2)
  1. SYCREST (ASENAPINE /05706901/) [Suspect]
     Indication: BIPOLAR I DISORDER
     Dosage: 5 MG;QD;SL
     Route: 060
     Dates: start: 20120615, end: 20120617
  2. PALIPERIDONE [Concomitant]

REACTIONS (3)
  - MUSCLE SPASMS [None]
  - HYPOTENSION [None]
  - FORMICATION [None]
